FAERS Safety Report 7339733-6 (Version None)
Quarter: 2011Q1

REPORT INFORMATION
  Report Type: 
  Country: None (occurrence: None)
  Receive Date: 20110303
  Receipt Date: 20110303
  Transmission Date: 20110831
  Serious: Yes (Life-Threatening)
  Sender: FDA-Public Use
  Company Number: None

PATIENT
  Age: 46 Year
  Sex: Female
  Weight: 50.8029 kg

DRUGS (1)
  1. TRIAMCINOLONE [Suspect]
     Indication: SEBORRHOEIC DERMATITIS
     Dosage: APPLY TO SCALP 1X A DAY TOP
     Route: 061
     Dates: start: 20110209, end: 20110211

REACTIONS (2)
  - PHARYNGEAL OEDEMA [None]
  - DYSPNOEA [None]
